FAERS Safety Report 7308588-8 (Version None)
Quarter: 2011Q1

REPORT INFORMATION
  Report Type: 
  Country: None (occurrence: None)
  Receive Date: 20110223
  Receipt Date: 20110129
  Transmission Date: 20110831
  Serious: No
  Sender: FDA-Public Use
  Company Number: US-B.I. PHARMACEUTICALS,INC./RIDGEFIELD-2011-BP-03260BP

PATIENT
  Sex: Female

DRUGS (1)
  1. ZANTAC 75 [Suspect]
     Indication: CHEST DISCOMFORT
     Dosage: 75 MG
     Route: 048
     Dates: start: 20110129

REACTIONS (2)
  - CHEST DISCOMFORT [None]
  - PHARYNGEAL ERYTHEMA [None]
